FAERS Safety Report 21691205 (Version 3)
Quarter: 2023Q1

REPORT INFORMATION
  Report Type: Spontaneous
  Country: NO (occurrence: NO)
  Receive Date: 20221207
  Receipt Date: 20230105
  Transmission Date: 20230417
  Serious: Yes (Other)
  Sender: FDA-Public Use
  Company Number: NO-SANOFI-01369345

PATIENT
  Age: 52 Year
  Sex: Female

DRUGS (3)
  1. APIDRA [Suspect]
     Active Substance: INSULIN GLULISINE
     Indication: Type 1 diabetes mellitus
     Dosage: 23 IU
     Route: 058
  2. APIDRA [Suspect]
     Active Substance: INSULIN GLULISINE
     Dosage: 3.5 UNITS IN THE MORNING, OTHERWISE 2.5-3.5 UNITS AS NEEDED
     Route: 058
  3. LANTUS [Suspect]
     Active Substance: INSULIN GLARGINE
     Indication: Type 1 diabetes mellitus
     Dosage: UNK, TOTAL

REACTIONS (7)
  - Coeliac disease [Unknown]
  - Osteoarthritis [Unknown]
  - Fibromyalgia [Unknown]
  - Vision blurred [Unknown]
  - Intentional product misuse [Unknown]
  - Blood glucose decreased [Unknown]
  - Wrong product administered [Unknown]

NARRATIVE: CASE EVENT DATE: 20200101
